FAERS Safety Report 8333913-9 (Version None)
Quarter: 2012Q2

REPORT INFORMATION
  Report Type: 
  Country: None (occurrence: None)
  Receive Date: 20120503
  Receipt Date: 20120425
  Transmission Date: 20120825
  Serious: Yes (Death, Other)
  Sender: FDA-Public Use
  Company Number: US-ROCHE-1009656

PATIENT
  Sex: Female
  Weight: 99.426 kg

DRUGS (19)
  1. SINGULAIR [Concomitant]
  2. SYMBICORT [Concomitant]
     Dosage: 80/4.5, 2 PUFFS
  3. ASPIRIN [Concomitant]
     Dosage: CHEWABLE
     Route: 048
  4. DUONEB [Concomitant]
     Dates: start: 20101014
  5. COMBIVENT [Concomitant]
     Dosage: 103 - 18 MCG/ACT, 2 PUFFS Q 4-6 HRS
  6. ATROVENT HFA [Concomitant]
     Indication: ASTHMA
     Dosage: 17/MCG/ACT, 2 PUFFS EVERY 4HOURS
     Route: 055
  7. LEVAQUIN [Concomitant]
     Route: 048
  8. XOLAIR [Suspect]
     Indication: ASTHMA
     Route: 058
     Dates: start: 20080701, end: 20101014
  9. DIOVAN HCT [Concomitant]
     Route: 048
  10. ALLEGRA [Concomitant]
     Route: 048
  11. ZYFLO CR [Concomitant]
     Indication: ASTHMA
     Dosage: 2 TABS
     Dates: start: 20090225
  12. MAXAIR [Concomitant]
     Indication: ASTHMA
     Route: 055
  13. SPIRIVA [Concomitant]
     Dosage: 1 PUFF EVERY DAY
  14. FORADIL [Concomitant]
  15. XOPENEX [Concomitant]
     Dosage: 0.63 MG/3 ML, 1AMP EVERY 4-6 HRS
  16. ALBUTEROL [Concomitant]
     Dates: start: 20101014, end: 20101026
  17. LIPITOR [Concomitant]
     Route: 048
  18. NIASPAN [Concomitant]
     Dosage: EVERY NIGHT
     Route: 048
  19. CYANOCOBALAMIN [Concomitant]
     Dosage: 115-180-10 MCG-MCG-MG
     Route: 048

REACTIONS (3)
  - RESPIRATORY FAILURE [None]
  - PNEUMONIA [None]
  - IDIOPATHIC PULMONARY FIBROSIS [None]
